FAERS Safety Report 8812005 (Version 5)
Quarter: 2013Q1

REPORT INFORMATION
  Report Type: Report from Study
  Country: DE (occurrence: DE)
  Receive Date: 20120927
  Receipt Date: 20130211
  Transmission Date: 20140127
  Serious: Yes (Hospitalization)
  Sender: FDA-Public Use
  Company Number: DE-ROCHE-1129683

PATIENT
  Age: 67 Year
  Sex: Male
  Weight: 77 kg

DRUGS (27)
  1. TOCILIZUMAB [Suspect]
     Indication: RHEUMATOID ARTHRITIS
     Dosage: LAST DOSE PRIOR TO SAE 16 AUG 2012
     Route: 042
     Dates: start: 20120523
  2. COLECALCIFEROL [Concomitant]
     Indication: OSTEOPOROSIS
     Route: 065
     Dates: start: 201112
  3. PANTOZOL [Concomitant]
     Indication: BARRETT^S OESOPHAGUS
     Route: 065
     Dates: start: 201112
  4. FOLSAN [Concomitant]
     Route: 065
     Dates: start: 201112
  5. VALSARTAN [Concomitant]
     Indication: HYPERTENSION
     Route: 065
     Dates: start: 2000
  6. LERCANIDIPINE [Concomitant]
     Indication: HYPERTENSION
     Route: 065
     Dates: start: 2000
  7. HYDROCHLOROTHIAZIDE [Concomitant]
     Indication: HYPERTENSION
     Route: 065
     Dates: start: 2000
  8. TIOTROPIUM BROMIDE [Concomitant]
     Indication: PULMONARY SARCOIDOSIS
     Route: 065
     Dates: start: 201112
  9. METHOTREXATE [Concomitant]
     Indication: RHEUMATOID ARTHRITIS
     Route: 065
     Dates: start: 201112
  10. TAUREDON [Concomitant]
     Indication: RHEUMATOID ARTHRITIS
     Route: 065
     Dates: start: 201112, end: 20120511
  11. PREDNISOLON [Concomitant]
     Indication: RHEUMATOID ARTHRITIS
     Route: 065
     Dates: start: 201201, end: 20120509
  12. PREDNISOLON [Concomitant]
     Route: 065
     Dates: start: 20120510, end: 20120520
  13. PREDNISOLON [Concomitant]
     Route: 065
     Dates: start: 20120521
  14. PARACETAMOL [Concomitant]
     Indication: RHEUMATOID ARTHRITIS
     Route: 065
     Dates: start: 20120509
  15. IBUHEXAL [Concomitant]
     Indication: RHEUMATOID ARTHRITIS
     Route: 065
     Dates: start: 20120509, end: 20120521
  16. IBUHEXAL [Concomitant]
     Route: 065
     Dates: start: 20120522, end: 20120524
  17. SALBUTAMOL [Concomitant]
     Indication: PULMONARY SARCOIDOSIS
     Route: 065
     Dates: start: 201112
  18. NEBILET [Concomitant]
     Indication: HYPERTENSION
     Route: 065
     Dates: start: 20120518
  19. CARBOSTESIN [Concomitant]
     Indication: RHEUMATOID ARTHRITIS
     Route: 065
     Dates: start: 20120515, end: 20120515
  20. CARBOSTESIN [Concomitant]
     Route: 065
     Dates: start: 20120516, end: 20120516
  21. CARBOSTESIN [Concomitant]
     Route: 065
     Dates: start: 20120518, end: 20120518
  22. VOLON A [Concomitant]
     Indication: RHEUMATOID ARTHRITIS
     Route: 065
     Dates: start: 20120515, end: 20120515
  23. VOLON A [Concomitant]
     Route: 065
     Dates: start: 20120516, end: 20120516
  24. VOLON A [Concomitant]
     Route: 065
     Dates: start: 20120518, end: 20120518
  25. LEDERLON [Concomitant]
     Indication: RHEUMATOID ARTHRITIS
     Route: 065
     Dates: start: 20120515, end: 20120515
  26. LEDERLON [Concomitant]
     Route: 065
     Dates: start: 20120516, end: 20120516
  27. LEDERLON [Concomitant]
     Route: 065
     Dates: start: 20120518, end: 20120518

REACTIONS (1)
  - Rheumatoid arthritis [Recovered/Resolved]
